FAERS Safety Report 10248121 (Version 1)
Quarter: 2014Q2

REPORT INFORMATION
  Report Type: Spontaneous
  Country: US (occurrence: US)
  Receive Date: 20140619
  Receipt Date: 20140619
  Transmission Date: 20141212
  Serious: No
  Sender: FDA-Public Use
  Company Number: US-TEVA-486648USA

PATIENT
  Sex: Female

DRUGS (3)
  1. QNASL [Suspect]
     Indication: HYPERSENSITIVITY
     Dosage: 2 SPRAYS IN EACH NOSTRIL
  2. ASTELIN [Concomitant]
     Indication: HOUSE DUST ALLERGY
  3. ZYRTEC [Concomitant]
     Indication: HOUSE DUST ALLERGY

REACTIONS (2)
  - Rhinalgia [Recovered/Resolved]
  - Nasal discomfort [Recovered/Resolved]
